FAERS Safety Report 6837458-4 (Version None)
Quarter: 2010Q3

REPORT INFORMATION
  Report Type: 
  Country: None (occurrence: None)
  Receive Date: 20100713
  Receipt Date: 20100707
  Transmission Date: 20110219
  Serious: Yes (Hospitalization)
  Sender: FDA-Public Use
  Company Number: FR-MERCK-1007FRA00026

PATIENT
  Age: 60 Year
  Sex: Male

DRUGS (3)
  1. ISENTRESS [Suspect]
     Indication: HIV INFECTION
     Route: 048
     Dates: start: 20090101, end: 20100601
  2. DARUNAVIR [Concomitant]
     Indication: HIV INFECTION
     Route: 048
  3. EMTRICITABINE AND TENOFOVIR DISOPROXIL FUMARATE [Concomitant]
     Indication: HIV INFECTION
     Route: 048

REACTIONS (4)
  - CONFUSIONAL STATE [None]
  - ENCEPHALITIS HERPES [None]
  - MENTAL DISORDER [None]
  - SYPHILIS [None]
